FAERS Safety Report 21831954 (Version 2)
Quarter: 2023Q1

REPORT INFORMATION
  Report Type: Spontaneous
  Country: HR (occurrence: HR)
  Receive Date: 20230106
  Receipt Date: 20230130
  Transmission Date: 20230418
  Serious: Yes (Hospitalization)
  Sender: FDA-Public Use
  Company Number: HR-TEVA-2022-HR-2841836

PATIENT
  Age: 58 Year
  Sex: Female

DRUGS (1)
  1. SORAFENIB [Suspect]
     Active Substance: SORAFENIB
     Indication: Desmoid tumour
     Dosage: 400 MILLIGRAM DAILY;
     Route: 048
     Dates: start: 202112

REACTIONS (1)
  - Toxic cardiomyopathy [Unknown]
